FAERS Safety Report 8321276-4 (Version None)
Quarter: 2012Q2

REPORT INFORMATION
  Report Type: 
  Country: None (occurrence: None)
  Receive Date: 20120430
  Receipt Date: 20120417
  Transmission Date: 20120825
  Serious: Yes (Hospitalization)
  Sender: FDA-Public Use
  Company Number: US-PAR PHARMACEUTICAL, INC-2012SCPR004330

PATIENT

DRUGS (16)
  1. SUPREP BOWEL PREP KIT [Concomitant]
     Indication: BOWEL PREPARATION
     Dosage: 12 OZ ONCE
     Route: 048
     Dates: start: 20120415, end: 20120415
  2. PLAVIX [Concomitant]
     Indication: CEREBROVASCULAR ACCIDENT PROPHYLAXIS
     Dosage: 75 MG, QD
     Route: 048
     Dates: start: 20100101
  3. DILTIAZEM [Concomitant]
     Indication: CHEST PAIN
  4. LORATADINE [Concomitant]
     Indication: HYPERTENSION
     Dosage: 20 MG, QD
     Route: 048
     Dates: start: 20050101
  5. PRILOSEC [Concomitant]
     Indication: GASTROOESOPHAGEAL REFLUX DISEASE
     Dosage: 20 MG, QD
     Route: 048
     Dates: start: 19900101
  6. CORTICOSTEROIDS [Concomitant]
     Indication: ASTHMA
     Dosage: UNK, BID
     Route: 045
  7. DILTIAZEM [Concomitant]
     Indication: PROPHYLAXIS
     Dosage: 240 MG, QD
     Route: 048
     Dates: start: 20100101
  8. METOPROLOL TARTRATE [Concomitant]
     Indication: HYPERTENSION
     Dosage: 50 MG, QD
     Route: 048
     Dates: start: 20050101
  9. FUROSEMIDE [Concomitant]
     Indication: DIURETIC THERAPY
     Dosage: 40 MG, QD
     Route: 048
     Dates: start: 20100101
  10. SINGULAIR [Concomitant]
     Indication: SEASONAL ALLERGY
     Dosage: 10 MG, QD
     Route: 048
     Dates: start: 20000101
  11. LEVOTHYROXINE SODIUM [Concomitant]
     Indication: HYPOTHYROIDISM
     Dosage: 125 MCG, QD
     Route: 048
     Dates: start: 19920101
  12. LIDOCAINE [Concomitant]
     Indication: SEDATIVE THERAPY
     Dosage: 50 MG, ONCE
     Dates: start: 20120416, end: 20120416
  13. PRAVASTATIN [Concomitant]
     Indication: BLOOD CHOLESTEROL INCREASED
     Dosage: 40 MG, QD
     Route: 048
     Dates: start: 20110101
  14. KLOR-CON M10 [Concomitant]
     Indication: BLOOD POTASSIUM DECREASED
     Dosage: 20 MG, QD
     Route: 048
     Dates: start: 20100101
  15. LUBIPROSTONE [Suspect]
     Indication: CONSTIPATION
     Dosage: DOSE NOT ADMINISTERED
  16. PROPOFOL [Concomitant]
     Indication: SEDATIVE THERAPY
     Dosage: 600 MG, SINGLE
     Dates: start: 20120416, end: 20120416

REACTIONS (2)
  - PNEUMONIA [None]
  - ASPIRATION [None]
